FAERS Safety Report 7634165-5 (Version None)
Quarter: 2011Q3

REPORT INFORMATION
  Report Type: 
  Country: None (occurrence: None)
  Receive Date: 20110725
  Receipt Date: 20110721
  Transmission Date: 20111222
  Serious: Yes (Death)
  Sender: FDA-Public Use
  Company Number: US-UCBSA-036921

PATIENT
  Sex: Male
  Weight: 59.87 kg

DRUGS (11)
  1. TEMAZEPAM [Concomitant]
     Indication: INSOMNIA
     Dates: start: 20011101, end: 20110709
  2. GENERAL SOLUTION [Concomitant]
     Indication: CONSTIPATION
     Dates: start: 20100501, end: 20110709
  3. ROTIGOTINE [Suspect]
     Indication: PARKINSON'S DISEASE
     Route: 062
     Dates: start: 20110207, end: 20110709
  4. COLACE [Concomitant]
     Indication: CONSTIPATION
     Dates: start: 20090601, end: 20110709
  5. REQUIP XL [Concomitant]
     Indication: PARKINSON'S DISEASE
     Dates: start: 20110107, end: 20110709
  6. METFORMIN [Concomitant]
     Indication: DIABETES MELLITUS
     Dates: start: 20080101, end: 20110709
  7. CALTIRTATE CALCIUM + VTAMIN D [Concomitant]
     Indication: MEDICAL DIET
     Dates: start: 20030101, end: 20110709
  8. PIROXICAM [Concomitant]
     Indication: PAIN
     Dates: start: 20050101, end: 20110709
  9. B12 VITAMIN [Concomitant]
     Indication: VITAMIN SUPPLEMENTATION
     Dosage: ONCE EVERY MORNING
     Dates: start: 20030101, end: 20110709
  10. SINEMET [Concomitant]
     Indication: PARKINSON'S DISEASE
     Dosage: 50/200 MG THRICE A DAY
     Dates: start: 19950101, end: 20110709
  11. ASPIRIN [Concomitant]
     Indication: PROPHYLAXIS
     Dates: start: 20070101, end: 20110709

REACTIONS (1)
  - RESPIRATORY ARREST [None]
